FAERS Safety Report 4863961-2 (Version None)
Quarter: 2005Q4

REPORT INFORMATION
  Report Type: 
  Country: None (occurrence: None)
  Receive Date: 20051219
  Receipt Date: 20051219
  Transmission Date: 20060501
  Serious: Yes (Death, Life-Threatening, Hospitalization)
  Sender: FDA-Public Use
  Company Number: None

PATIENT
  Sex: Male
  Weight: 60 kg

DRUGS (15)
  1. CETUXIMAB  (MG/M2), WK 1-9, WK 15-44 [Suspect]
     Indication: OESOPHAGEAL CARCINOMA
     Dosage: 250 IV
     Route: 042
     Dates: start: 20050722, end: 20050902
  2. IRINOTECAN HCL [Suspect]
     Indication: OESOPHAGEAL CARCINOMA
     Dosage: 65 IV
     Route: 042
     Dates: start: 20050729, end: 20050909
  3. CISPLATIN [Suspect]
     Indication: OESOPHAGEAL CARCINOMA
     Dosage: 30 IV
     Route: 042
     Dates: start: 20050729, end: 20050902
  4. XRT, D1-5, WK 2-7 [Suspect]
     Indication: OESOPHAGEAL CARCINOMA
     Dosage: 180GCY
     Dates: start: 20050725, end: 20050903
  5. ACETAMINOPHEN [Concomitant]
  6. DEXAMETHASONE [Concomitant]
  7. COMPAZINE [Concomitant]
  8. LORAZEPAM [Concomitant]
  9. CLEOCIN [Concomitant]
  10. FLUCONAZOLE [Concomitant]
  11. XENADERM [Concomitant]
  12. LIDOCAINE [Concomitant]
  13. LEVAQUIN [Concomitant]
  14. GLUTAMINE [Concomitant]
  15. OSMOLITE [Concomitant]

REACTIONS (17)
  - ASPERGILLOSIS [None]
  - ASTHENIA [None]
  - ATRIAL FIBRILLATION [None]
  - DIARRHOEA [None]
  - FATIGUE [None]
  - FLUID INTAKE REDUCED [None]
  - HYPOTENSION [None]
  - LACTIC ACIDOSIS [None]
  - LETHARGY [None]
  - OESOPHAGITIS [None]
  - PNEUMONIA [None]
  - RASH [None]
  - RESPIRATORY FAILURE [None]
  - SEPSIS [None]
  - SHOCK [None]
  - SOMNOLENCE [None]
  - SPUTUM CULTURE POSITIVE [None]
